FAERS Safety Report 21282869 (Version 1)
Quarter: 2022Q3

REPORT INFORMATION
  Report Type: Report from Study
  Country: CO (occurrence: CO)
  Receive Date: 20220901
  Receipt Date: 20220901
  Transmission Date: 20221027
  Serious: Yes (Death, Other)
  Sender: FDA-Public Use
  Company Number: CO-ASTELLAS-2022US030800

PATIENT
  Age: 76 Year
  Sex: Male

DRUGS (1)
  1. TACROLIMUS [Suspect]
     Active Substance: TACROLIMUS
     Indication: Renal transplant
     Route: 048
     Dates: start: 20160816

REACTIONS (5)
  - Lung disorder [Fatal]
  - Cardiovascular disorder [Fatal]
  - Organ failure [Fatal]
  - Renal failure [Fatal]
  - Renal injury [Fatal]

NARRATIVE: CASE EVENT DATE: 20220813
